FAERS Safety Report 26217105 (Version 1)
Quarter: 2025Q4

REPORT INFORMATION
  Report Type: Spontaneous
  Country: EU (occurrence: None)
  Receive Date: 20251231
  Receipt Date: 20251231
  Transmission Date: 20260118
  Serious: Yes (Other)
  Sender: Alvotech
  Company Number: EU-ALVOTECHPMS-2025-ALVOTECHPMS-006205

PATIENT
  Age: 49 Year
  Sex: Female
  Weight: 60 kg

DRUGS (4)
  1. ADALIMUMAB [Suspect]
     Active Substance: ADALIMUMAB
     Indication: Irritable bowel syndrome
     Dosage: SOLUTION FOR INJECTION IN?PRE-FILLED PEN
     Route: 058
     Dates: start: 20250731, end: 20250911
  2. VITAMIN D [Concomitant]
     Active Substance: VITAMIN D NOS
     Dosage: 1X2000 IU
  3. Citrocalcium [Concomitant]
     Dosage: 1X200MG
  4. ACETAMINOPHEN\TRAMADOL HYDROCHLORIDE [Concomitant]
     Active Substance: ACETAMINOPHEN\TRAMADOL HYDROCHLORIDE
     Dosage: 37.5/325MG AS NEEDED

REACTIONS (1)
  - Irritable bowel syndrome [Recovered/Resolved]

NARRATIVE: CASE EVENT DATE: 20250815
